FAERS Safety Report 6853344-8 (Version None)
Quarter: 2010Q3

REPORT INFORMATION
  Report Type: 
  Country: None (occurrence: None)
  Receive Date: 20100717
  Receipt Date: 20071204
  Transmission Date: 20110219
  Serious: No
  Sender: FDA-Public Use
  Company Number: US-PFIZER INC-2007103835

PATIENT
  Sex: Female
  Weight: 95.3 kg

DRUGS (9)
  1. CHANTIX [Suspect]
     Dates: start: 20071130
  2. INSULIN [Concomitant]
  3. XANAX [Concomitant]
  4. NEURONTIN [Concomitant]
  5. LISINOPRIL [Concomitant]
  6. FLEXERIL [Concomitant]
  7. LASIX [Concomitant]
  8. VICODIN [Concomitant]
  9. LOPID [Concomitant]

REACTIONS (1)
  - NAUSEA [None]
